FAERS Safety Report 21696656 (Version 1)
Quarter: 2022Q4

REPORT INFORMATION
  Report Type: Spontaneous
  Country: DE (occurrence: DE)
  Receive Date: 20221207
  Receipt Date: 20221207
  Transmission Date: 20230113
  Serious: Yes (Congenital Anomaly)
  Sender: FDA-Public Use
  Company Number: DE-EMBRYOTOX-202112757

PATIENT
  Sex: Male
  Weight: 3.58 kg

DRUGS (3)
  1. METOPROLOL [Suspect]
     Active Substance: METOPROLOL
     Indication: Product used for unknown indication
     Dosage: 71.25 [MG/D (47.5-0-23.75) ]
     Route: 064
     Dates: start: 20210113, end: 20210914
  2. Comirnaty monovalent [Concomitant]
     Indication: Product used for unknown indication
     Route: 064
     Dates: start: 20210511, end: 20210511
  3. Comirnaty monovalent [Concomitant]
     Indication: COVID-19 immunisation
     Route: 064
     Dates: start: 20210622, end: 20210622

REACTIONS (2)
  - Pelvic kidney [Not Recovered/Not Resolved]
  - Foetal exposure during pregnancy [Unknown]
